FAERS Safety Report 18518937 (Version 3)
Quarter: 2023Q2

REPORT INFORMATION
  Report Type: Report from Study
  Country: US (occurrence: US)
  Receive Date: 20201118
  Receipt Date: 20230403
  Transmission Date: 20230722
  Serious: No
  Sender: FDA-Public Use
  Company Number: US-TAKEDA-2020TUS050110

PATIENT
  Sex: Female

DRUGS (1)
  1. IXAZOMIB [Suspect]
     Active Substance: IXAZOMIB
     Indication: Amyloidosis
     Dosage: 4 MILLIGRAM
     Route: 065
     Dates: start: 20230123

REACTIONS (6)
  - Brain fog [Unknown]
  - Headache [Unknown]
  - Product dose omission issue [Unknown]
  - Product physical issue [Unknown]
  - Off label use [Unknown]
  - Accidental exposure to product [Unknown]
